FAERS Safety Report 8919804 (Version 2)
Quarter: 2013Q1

REPORT INFORMATION
  Report Type: Spontaneous
  Country: US (occurrence: US)
  Receive Date: 20121121
  Receipt Date: 20130312
  Transmission Date: 20140127
  Serious: Yes (Hospitalization, Other)
  Sender: FDA-Public Use
  Company Number: US-BAYER-2012-119992

PATIENT
  Age: 25 Year
  Sex: Female

DRUGS (12)
  1. YAZ [Suspect]
  2. YASMIN [Suspect]
  3. OCELLA [Suspect]
  4. VALIUM [BENZOIC AC,BENZYL ALCOH,DIAZEPAM,ETHANOL,PROPYL GLYC,NA+ B [Concomitant]
     Dosage: 5 MG, UNK
  5. PERCOCET [OXYCODONE HYDROCHLORIDE,OXYCODONE TEREPHTHALATE,PARACETA [Concomitant]
     Dosage: 5/325MG
  6. PHENERGAN [CEPHAEL SPP.,CHLOROF,CITRIC AC,DEXTROMET,PROMETHAZ,NA+, [Concomitant]
     Dosage: 25 MG, UNK
  7. VICODIN [Concomitant]
  8. MULTIVITAMIN [Concomitant]
  9. NITROUS OXIDE [Concomitant]
  10. DILAUDID [Concomitant]
     Indication: PAIN
  11. BACLOFEN [Concomitant]
  12. ZITHROMAX [Concomitant]

REACTIONS (9)
  - Deep vein thrombosis [None]
  - Biliary dyskinesia [None]
  - Pulmonary embolism [Recovered/Resolved]
  - Pain [None]
  - Injury [Recovered/Resolved]
  - General physical health deterioration [Recovered/Resolved]
  - Anxiety [None]
  - Emotional distress [None]
  - Pain [Recovered/Resolved]
